FAERS Safety Report 7577211-X (Version None)
Quarter: 2011Q2

REPORT INFORMATION
  Report Type: 
  Country: None (occurrence: None)
  Receive Date: 20110628
  Receipt Date: 20110615
  Transmission Date: 20111010
  Serious: Yes (Other)
  Sender: FDA-Public Use
  Company Number: US-CELGENEUS-163-21880-11062292

PATIENT
  Sex: Male

DRUGS (3)
  1. REVLIMID [Suspect]
     Dosage: 5MG EOD ALTERNATING WITH 10MG EOD
     Route: 048
     Dates: start: 20110616
  2. REVLIMID [Suspect]
     Indication: MULTIPLE MYELOMA
     Dosage: 10 MILLIGRAM
     Route: 048
     Dates: start: 20110129, end: 20110615
  3. WHOLE BLOOD [Concomitant]
     Route: 051
     Dates: start: 20110501, end: 20110501

REACTIONS (4)
  - TRANSFUSION ASSOCIATED GRAFT VERSUS HOST DISEASE [None]
  - PLATELET COUNT DECREASED [None]
  - BACK PAIN [None]
  - ARTHRITIS [None]
